FAERS Safety Report 10844842 (Version 2)
Quarter: 2015Q1

REPORT INFORMATION
  Report Type: Spontaneous
  Country: JP (occurrence: JP)
  Receive Date: 20150220
  Receipt Date: 20150224
  Transmission Date: 20150721
  Serious: Yes (Other)
  Sender: FDA-Public Use
  Company Number: JP-PFIZER INC-2015052267

PATIENT

DRUGS (15)
  1. LYRICA [Suspect]
     Active Substance: PREGABALIN
     Indication: PAIN
     Dosage: 150 MG (75 MG X 2 CAPSULES), DAILY
     Route: 048
     Dates: start: 20141220, end: 20141227
  2. GASTER [Concomitant]
     Active Substance: FAMOTIDINE
     Dosage: 20 MG (1 TABLET), UNK
     Route: 048
  3. TENORMIN [Concomitant]
     Active Substance: ATENOLOL
     Dosage: 25 MG (1 TABLET), UNK
     Route: 048
  4. TOFRANIL [Concomitant]
     Active Substance: IMIPRAMINE HYDROCHLORIDE
     Dosage: 1 DF, DAILY
     Route: 048
     Dates: start: 20141227, end: 20150110
  5. AMLODIPINE [Concomitant]
     Active Substance: AMLODIPINE BESYLATE
     Dosage: 5 MG (1 TABLET), UNK
     Route: 048
  6. BAYASPIRIN [Concomitant]
     Active Substance: ASPIRIN
     Dosage: 100 MG (1 TABLET), UNK
     Route: 048
  7. CYMBALTA [Concomitant]
     Active Substance: DULOXETINE HYDROCHLORIDE
     Indication: PAIN
     Dosage: UNK
     Dates: start: 2014, end: 20141220
  8. TOFRANIL [Concomitant]
     Active Substance: IMIPRAMINE HYDROCHLORIDE
     Indication: PAIN
     Dosage: 1 DF, 2X/DAY
     Route: 048
     Dates: start: 20141220, end: 20141227
  9. NITROPEN [Concomitant]
     Active Substance: NITROGLYCERIN
     Dosage: 0.3 MG (1 TABLET), AS NEEDED
     Route: 060
  10. LYRICA [Suspect]
     Active Substance: PREGABALIN
     Dosage: 75 MG (1 CAPSULE), DAILY
     Route: 048
     Dates: start: 20141227, end: 20150110
  11. LYRICA [Suspect]
     Active Substance: PREGABALIN
     Dosage: 150 MG (75 MG X 2 CAPSULES), DAILY
     Route: 048
     Dates: start: 20150110, end: 201501
  12. LUNESTA [Concomitant]
     Active Substance: ESZOPICLONE
     Dosage: 2 MG (1 TABLET), UNK
     Route: 048
  13. CEPHADOL [Concomitant]
     Active Substance: DIPHENIDOL HYDROCHLORIDE
     Dosage: 50 MG (25 MG X 2 TABLETS), UNK
     Route: 048
  14. ISOMENYL [Concomitant]
     Active Substance: ISOPROTERENOL HYDROCHLORIDE
     Dosage: 15 MG (7.5 MG X 2 TABLETS), UNK
     Route: 048
  15. TOFRANIL [Concomitant]
     Active Substance: IMIPRAMINE HYDROCHLORIDE
     Dosage: 1 DF, 2X/DAY
     Route: 048
     Dates: start: 20150110, end: 201501

REACTIONS (5)
  - Road traffic accident [Unknown]
  - Dizziness [Recovered/Resolved]
  - Altered state of consciousness [Recovered/Resolved]
  - Thirst [Recovered/Resolved]
  - Malaise [Recovered/Resolved]

NARRATIVE: CASE EVENT DATE: 20141227
